FAERS Safety Report 23542888 (Version 1)
Quarter: 2024Q1

REPORT INFORMATION
  Report Type: Spontaneous
  Country: US (occurrence: US)
  Receive Date: 20240220
  Receipt Date: 20240220
  Transmission Date: 20240410
  Serious: No
  Sender: FDA-Public Use
  Company Number: US-ABBVIE-5643525

PATIENT

DRUGS (2)
  1. BENTYL [Suspect]
     Active Substance: DICYCLOMINE HYDROCHLORIDE
     Indication: Product used for unknown indication
     Route: 065
  2. CLINDAMYCIN HYDROCHLORIDE [Suspect]
     Active Substance: CLINDAMYCIN HYDROCHLORIDE
     Indication: Endodontic procedure
     Dosage: 10 MG 4 TIMES
     Route: 065
     Dates: start: 20231108

REACTIONS (3)
  - Adverse drug reaction [Unknown]
  - Illness [Unknown]
  - Pain [Unknown]
